FAERS Safety Report 6683371-5 (Version None)
Quarter: 2010Q2

REPORT INFORMATION
  Report Type: 
  Country: None (occurrence: None)
  Receive Date: 20100415
  Receipt Date: 20100115
  Transmission Date: 20101027
  Serious: No
  Sender: FDA-Public Use
  Company Number: A0839737A

PATIENT
  Sex: Female

DRUGS (9)
  1. LEUKERAN [Suspect]
     Indication: DRUG USE FOR UNKNOWN INDICATION
     Dosage: 2TAB WEEKLY
     Route: 048
     Dates: start: 20090213
  2. METHOTREXATE [Concomitant]
  3. BYETTA [Concomitant]
  4. PROZAC [Concomitant]
  5. PRAVACHOL [Concomitant]
  6. AVANDAMET [Concomitant]
  7. HYDROCHLOROTHIAZIDE [Concomitant]
  8. SELDANE [Concomitant]
  9. LISINOPRIL [Concomitant]

REACTIONS (1)
  - MEDICATION ERROR [None]
